FAERS Safety Report 9285804 (Version 5)
Quarter: 2015Q4

REPORT INFORMATION
  Report Type: Report from Study
  Country: US (occurrence: US)
  Receive Date: 20130513
  Receipt Date: 20151023
  Transmission Date: 20160305
  Serious: Yes (Life-Threatening, Hospitalization, Disabling, Other)
  Sender: FDA-Public Use
  Company Number: US-SANOFI-AVENTIS-2013SA046528

PATIENT
  Age: 60 Year
  Sex: Female

DRUGS (8)
  1. AUBAGIO [Suspect]
     Active Substance: TERIFLUNOMIDE
     Indication: MULTIPLE SCLEROSIS
     Route: 048
     Dates: start: 201501
  2. AUBAGIO [Suspect]
     Active Substance: TERIFLUNOMIDE
     Indication: MULTIPLE SCLEROSIS
     Route: 048
     Dates: start: 20130226, end: 20130506
  3. METHIMAZOLE. [Suspect]
     Active Substance: METHIMAZOLE
     Indication: HYPERTHYROIDISM
     Route: 048
     Dates: start: 2015
  4. ARIXTRA [Concomitant]
     Active Substance: FONDAPARINUX SODIUM
  5. METHIMAZOLE. [Suspect]
     Active Substance: METHIMAZOLE
     Indication: HYPERTHYROIDISM
     Route: 048
     Dates: start: 2014
  6. HEPARIN [Suspect]
     Active Substance: HEPARIN SODIUM
  7. TECFIDERA [Suspect]
     Active Substance: DIMETHYL FUMARATE
     Indication: MULTIPLE SCLEROSIS
     Route: 065
     Dates: start: 20130601, end: 20141101
  8. LEVAQUIN [Concomitant]
     Active Substance: LEVOFLOXACIN

REACTIONS (22)
  - Respiratory arrest [Recovering/Resolving]
  - Nerve stimulation test abnormal [Not Recovered/Not Resolved]
  - Intervertebral disc displacement [Unknown]
  - Coagulation factor VIII level increased [Recovering/Resolving]
  - Hypercoagulation [Recovering/Resolving]
  - Areflexia [Not Recovered/Not Resolved]
  - Arthralgia [Unknown]
  - Hyperthyroidism [Not Recovered/Not Resolved]
  - White blood cell count decreased [Not Recovered/Not Resolved]
  - Joint swelling [Unknown]
  - Pulmonary infarction [Recovering/Resolving]
  - Intervertebral disc protrusion [Unknown]
  - Guillain-Barre syndrome [Not Recovered/Not Resolved]
  - Muscular weakness [Not Recovered/Not Resolved]
  - Abasia [Unknown]
  - Pneumonia [Unknown]
  - Paralysis [Not Recovered/Not Resolved]
  - Platelet count decreased [Unknown]
  - Nerve injury [Recovering/Resolving]
  - Pulmonary embolism [Not Recovered/Not Resolved]
  - Surgery [Unknown]
  - Nasopharyngitis [Not Recovered/Not Resolved]

NARRATIVE: CASE EVENT DATE: 20130228
